FAERS Safety Report 7422797-9 (Version None)
Quarter: 2011Q2

REPORT INFORMATION
  Report Type: 
  Country: None (occurrence: None)
  Receive Date: 20110414
  Receipt Date: 20110414
  Transmission Date: 20111010
  Serious: Yes (Hospitalization)
  Sender: FDA-Public Use
  Company Number: None

PATIENT
  Age: 62 Year
  Sex: Male
  Weight: 124.3 kg

DRUGS (1)
  1. ETANERCEPT [Suspect]
     Dosage: 50 MG QWEEK SQ
     Route: 058
     Dates: start: 20100830, end: 20110117

REACTIONS (2)
  - VERTIGO [None]
  - ATAXIA [None]
